FAERS Safety Report 21628046 (Version 2)
Quarter: 2023Q2

REPORT INFORMATION
  Report Type: Report from Study
  Country: US (occurrence: US)
  Receive Date: 20221122
  Receipt Date: 20230421
  Transmission Date: 20230721
  Serious: No
  Sender: FDA-Public Use
  Company Number: US-ABBVIE-22K-163-4422818-00

PATIENT
  Age: 41 Year
  Sex: Female

DRUGS (4)
  1. HUMIRA [Suspect]
     Active Substance: ADALIMUMAB
     Indication: Hidradenitis
     Dosage: CITRATE FREE?FORM STRENGTH: 40MG
     Route: 058
     Dates: start: 20210413
  2. PFIZER-BIONTECH COVID-19 VACCINE [Concomitant]
     Active Substance: TOZINAMERAN
     Indication: COVID-19 immunisation
     Dosage: TIME INTERVAL: 1 TOTAL: 1ST DOSE, 1 IN ONCE
     Route: 030
     Dates: start: 20210925, end: 20210925
  3. PFIZER-BIONTECH COVID-19 VACCINE [Concomitant]
     Active Substance: TOZINAMERAN
     Indication: COVID-19 immunisation
     Dosage: TIME INTERVAL: 1 TOTAL: 2ND DOSE, 1 IN ONCE
     Route: 030
     Dates: start: 20211015, end: 20211015
  4. PFIZER-BIONTECH COVID-19 VACCINE [Concomitant]
     Active Substance: TOZINAMERAN
     Indication: COVID-19 immunisation
     Dosage: TIME INTERVAL: 1 TOTAL: 3RD DOSE/BOOSTER DOSE, 1 IN ONCE
     Route: 030
     Dates: start: 20220315, end: 20220315

REACTIONS (2)
  - Hidradenitis [Recovered/Resolved]
  - Hidradenitis [Recovering/Resolving]

NARRATIVE: CASE EVENT DATE: 20220801
